FAERS Safety Report 21812896 (Version 2)
Quarter: 2023Q1

REPORT INFORMATION
  Report Type: Report from Study
  Country: US (occurrence: None)
  Receive Date: 20230103
  Receipt Date: 20230120
  Transmission Date: 20230418
  Serious: Yes (Hospitalization)
  Sender: FDA-Public Use
  Company Number: US-Eisai Medical Research-EC-2022-129564

PATIENT
  Age: 68 Year
  Sex: Female

DRUGS (1)
  1. LENVIMA [Suspect]
     Active Substance: LENVATINIB
     Indication: Endometrial cancer
     Route: 048
     Dates: start: 20221128, end: 202212

REACTIONS (8)
  - Pneumonia [Unknown]
  - Cardiac failure congestive [Unknown]
  - Urinary incontinence [Unknown]
  - Headache [Recovered/Resolved]
  - Insomnia [Unknown]
  - Fatigue [Unknown]
  - Oedema peripheral [Unknown]
  - Decreased appetite [Unknown]

NARRATIVE: CASE EVENT DATE: 20221201
